FAERS Safety Report 10575726 (Version 1)
Quarter: 2014Q4

REPORT INFORMATION
  Report Type: Spontaneous
  Country: US (occurrence: US)
  Receive Date: 20141111
  Receipt Date: 20141111
  Transmission Date: 20150529
  Serious: No
  Sender: FDA-Public Use
  Company Number: US-PFIZER INC-2014305061

PATIENT
  Age: 72 Year
  Sex: Female
  Weight: 71 kg

DRUGS (1)
  1. IBUPROFEN. [Suspect]
     Active Substance: IBUPROFEN
     Dosage: 800 MG, (200MG FOUR PER DAY) DAILY

REACTIONS (1)
  - Epigastric discomfort [Unknown]
